FAERS Safety Report 6530867-2 (Version None)
Quarter: 2010Q1

REPORT INFORMATION
  Report Type: 
  Country: None (occurrence: None)
  Receive Date: 20100108
  Receipt Date: 20090526
  Transmission Date: 20100710
  Serious: No
  Sender: FDA-Public Use
  Company Number: A0780312A

PATIENT
  Age: 68 Year
  Sex: Female

DRUGS (10)
  1. LOVAZA [Suspect]
     Dosage: 1G FOUR TIMES PER DAY
     Route: 048
     Dates: start: 20060101
  2. XANAX [Concomitant]
  3. WELLBUTRIN [Concomitant]
  4. LASIX [Concomitant]
  5. CYMBALTA [Concomitant]
  6. PREVACID [Concomitant]
  7. ZETIA [Concomitant]
  8. PROVIGIL [Concomitant]
  9. LISINOPRIL [Concomitant]
  10. MESTINON [Concomitant]

REACTIONS (2)
  - PRODUCT QUALITY ISSUE [None]
  - RETCHING [None]
